FAERS Safety Report 25823689 (Version 2)
Quarter: 2025Q4

REPORT INFORMATION
  Report Type: Spontaneous
  Country: EU (occurrence: EU)
  Receive Date: 20250919
  Receipt Date: 20251006
  Transmission Date: 20260117
  Serious: Yes (Other)
  Sender: SUNOVION
  Company Number: EU-RICHTER-2025-GR-011177

PATIENT
  Age: 35 Year
  Sex: Female

DRUGS (1)
  1. ESTRADIOL\NORETHINDRONE ACETATE\RELUGOLIX [Suspect]
     Active Substance: ESTRADIOL\NORETHINDRONE ACETATE\RELUGOLIX
     Indication: Uterine leiomyoma
     Dosage: UNK
     Route: 048

REACTIONS (1)
  - Hormone receptor positive breast cancer [Unknown]

NARRATIVE: CASE EVENT DATE: 20240101
